FAERS Safety Report 11411073 (Version 1)
Quarter: 2015Q3

REPORT INFORMATION
  Report Type: Spontaneous
  Country: RO (occurrence: RO)
  Receive Date: 20150824
  Receipt Date: 20150824
  Transmission Date: 20151125
  Serious: Yes (Death)
  Sender: FDA-Public Use
  Company Number: RO-FRESENIUS KABI-FK201504019

PATIENT
  Age: 78 Year

DRUGS (5)
  1. COLISTIN [Suspect]
     Active Substance: COLISTIN
     Indication: TRANSURETHRAL RESECTION SYNDROME
  2. MEROPENEM (MANUFACTURER UNKNOWN) [Suspect]
     Active Substance: MEROPENEM
     Indication: TRANSURETHRAL RESECTION SYNDROME
  3. LEVOFLOXACIN (MANUFACTURER UNKNOWN) [Suspect]
     Active Substance: LEVOFLOXACIN
     Indication: TRANSURETHRAL RESECTION SYNDROME
  4. CIPROFLOXACIN. [Concomitant]
     Active Substance: CIPROFLOXACIN
  5. AMOXICILLIN CLAVULANIC ACID [Concomitant]
     Active Substance: AMOXICILLIN\CLAVULANIC ACID

REACTIONS (1)
  - Pathogen resistance [Fatal]
